FAERS Safety Report 24165348 (Version 2)
Quarter: 2024Q3

REPORT INFORMATION
  Report Type: Spontaneous
  Country: BG (occurrence: BG)
  Receive Date: 20240802
  Receipt Date: 20240813
  Transmission Date: 20241017
  Serious: Yes (Hospitalization, Other)
  Sender: JOHNSON AND JOHNSON
  Company Number: BG-BAYER-2024A109773

PATIENT
  Age: 62 Year
  Sex: Female

DRUGS (2)
  1. XARELTO [Suspect]
     Active Substance: RIVAROXABAN
     Indication: Product used for unknown indication
     Dosage: 20 MG
     Route: 048
     Dates: start: 2018
  2. SINTROM [Concomitant]
     Active Substance: ACENOCOUMAROL

REACTIONS (6)
  - Nervous system disorder [Unknown]
  - Thrombosis [Recovered/Resolved]
  - Epistaxis [Recovered/Resolved]
  - Superficial vein thrombosis [Unknown]
  - Methylenetetrahydrofolate reductase gene mutation [Unknown]
  - Blood homocysteine increased [Unknown]

NARRATIVE: CASE EVENT DATE: 20230101
